FAERS Safety Report 12856755 (Version 1)
Quarter: 2016Q4

REPORT INFORMATION
  Report Type: Spontaneous
  Country: US (occurrence: US)
  Receive Date: 20161017
  Receipt Date: 20161017
  Transmission Date: 20170207
  Serious: Yes (Disabling)
  Sender: FDA-Public Use
  Company Number: None

PATIENT
  Age: 58 Year
  Sex: Female
  Weight: 76.5 kg

DRUGS (9)
  1. DAILY VITAMIN [Concomitant]
     Active Substance: VITAMINS
  2. PROBIOTIC [Concomitant]
     Active Substance: PROBIOTICS NOS
  3. ROSUVASTATIN CALCIUM. [Suspect]
     Active Substance: ROSUVASTATIN CALCIUM
     Indication: BLOOD CHOLESTEROL INCREASED
     Dosage: ?          QUANTITY:1 TABLET(S);?
     Route: 048
     Dates: start: 20160929, end: 20161015
  4. FLECAINIDE ACETATE. [Concomitant]
     Active Substance: FLECAINIDE ACETATE
  5. FISH OIL [Concomitant]
     Active Substance: FISH OIL
  6. DILTIAZEM SUSTAINED [Concomitant]
  7. BUMETANIDE. [Concomitant]
     Active Substance: BUMETANIDE
  8. VITAMIN D [Concomitant]
     Active Substance: CHOLECALCIFEROL
  9. CALCIUM [Concomitant]
     Active Substance: CALCIUM

REACTIONS (15)
  - Myalgia [None]
  - Impaired work ability [None]
  - Somnolence [None]
  - Musculoskeletal stiffness [None]
  - Confusional state [None]
  - Activities of daily living impaired [None]
  - Headache [None]
  - Gait disturbance [None]
  - Diarrhoea [None]
  - Vision blurred [None]
  - Pain in extremity [None]
  - Fatigue [None]
  - Feeling abnormal [None]
  - Memory impairment [None]
  - Road traffic accident [None]

NARRATIVE: CASE EVENT DATE: 20161012
